FAERS Safety Report 17258109 (Version 1)
Quarter: 2020Q1

REPORT INFORMATION
  Report Type: Spontaneous
  Country: US (occurrence: US)
  Receive Date: 20200110
  Receipt Date: 20200110
  Transmission Date: 20200409
  Serious: Yes (Other)
  Sender: FDA-Public Use
  Company Number: US-PFIZER INC-2020010007

PATIENT
  Age: 75 Year
  Sex: Male
  Weight: 93.61 kg

DRUGS (1)
  1. CELEBREX [Suspect]
     Active Substance: CELECOXIB
     Indication: OSTEOARTHRITIS
     Dosage: 200 MG, 2X/DAY
     Route: 048

REACTIONS (5)
  - Dyspnoea [Unknown]
  - Prescribed overdose [Unknown]
  - Product use issue [Unknown]
  - Off label use [Unknown]
  - Lyme disease [Unknown]
